FAERS Safety Report 8723907 (Version 2)
Quarter: 2012Q4

REPORT INFORMATION
  Report Type: 
  Country: US (occurrence: US)
  Receive Date: 20120815
  Receipt Date: 20120919
  Transmission Date: 20130627
  Serious: No
  Sender: FDA-Public Use
  Company Number: US-PFIZER INC-2012197830

PATIENT
  Age: 73 Year
  Sex: Female
  Weight: 56.69 kg

DRUGS (6)
  1. FLECTOR [Suspect]
     Indication: ARTHRITIS
     Dosage: UNK, daily
     Dates: start: 20120314, end: 20120806
  2. FLECTOR [Suspect]
     Dosage: UNK
     Dates: start: 20120809, end: 20120815
  3. PRESERVISION EYE VITAMIN [Concomitant]
     Indication: MACULAR DEGENERATION
     Dosage: one tablet, 2x/day
     Route: 048
  4. LIPITOR [Concomitant]
     Indication: BLOOD CHOLESTEROL INCREASED
     Dosage: 20 mg, daily
  5. IBUPROFEN [Concomitant]
     Indication: ARTHRITIS
     Dosage: 200 mg, 3x/day
  6. HYDROCHLOROTHIAZIDE [Concomitant]
     Dosage: UNK

REACTIONS (1)
  - Application site haemorrhage [Not Recovered/Not Resolved]
